FAERS Safety Report 18805916 (Version 1)
Quarter: 2021Q1

REPORT INFORMATION
  Report Type: Spontaneous
  Country: US (occurrence: US)
  Receive Date: 20210128
  Receipt Date: 20210128
  Transmission Date: 20210419
  Serious: Yes (Hospitalization)
  Sender: FDA-Public Use
  Company Number: None

PATIENT
  Age: 53 Year
  Sex: Female
  Weight: 84.2 kg

DRUGS (2)
  1. CISPLATIN. [Suspect]
     Active Substance: CISPLATIN
     Dates: end: 20210104
  2. ETOPOSIDE (VP?16) [Suspect]
     Active Substance: ETOPOSIDE
     Dates: end: 20210102

REACTIONS (13)
  - Odynophagia [None]
  - Pancytopenia [None]
  - Nausea [None]
  - Sinus tachycardia [None]
  - Electrolyte imbalance [None]
  - Hypocalcaemia [None]
  - Radiation oesophagitis [None]
  - Anaemia [None]
  - Chest pain [None]
  - Hypophagia [None]
  - Dysphagia [None]
  - Vomiting [None]
  - Hypokalaemia [None]

NARRATIVE: CASE EVENT DATE: 20210104
